FAERS Safety Report 9255236 (Version 2)
Quarter: 2013Q3

REPORT INFORMATION
  Report Type: Spontaneous
  Country: US (occurrence: None)
  Receive Date: 20130419
  Receipt Date: 20130910
  Transmission Date: 20140515
  Serious: Yes (Hospitalization, Other)
  Sender: FDA-Public Use
  Company Number: 2012-003758

PATIENT
  Age: 64 Year
  Sex: Female

DRUGS (11)
  1. ACTONEL (RISEDRONATE SODIUM) TABLET, 35MG [Suspect]
     Indication: OSTEOPOROSIS
     Route: 048
     Dates: start: 201308
  2. ACTONEL (RISEDRONATE SODIUM) TABLET, 35MG [Suspect]
     Indication: OSTEOPOROSIS PROPHYLAXIS
     Route: 048
     Dates: start: 201308
  3. ACTONEL (RISEDRONATE SODIUM) TABLET, 35MG [Suspect]
     Route: 048
     Dates: start: 201308
  4. BONIVA (IBANDRONATE SODIUM) [Suspect]
     Dates: start: 2005, end: 2010
  5. FOSAMAX (ALENDRONATE SODIUM) [Suspect]
     Indication: OSTEOPOROSIS
     Route: 048
     Dates: start: 20001218, end: 200307
  6. FOSAMAX (ALENDRONATE SODIUM) [Suspect]
     Route: 048
     Dates: start: 20001218, end: 200307
  7. ALENDRONATE (ALENDRONATE SODIUM) [Suspect]
     Indication: OSTEOPOROSIS
     Route: 048
  8. ALENDRONATE (ALENDRONATE SODIUM) [Suspect]
     Indication: OSTEOPOROSIS PROPHYLAXIS
     Route: 048
  9. ALENDRONATE (ALENDRONATE SODIUM) [Suspect]
     Route: 048
  10. LIPITOR (ATORVASTATIN CALCIUM) [Concomitant]
  11. PAXIL [Concomitant]

REACTIONS (9)
  - Femur fracture [None]
  - Fall [None]
  - Pain in extremity [None]
  - Pathological fracture [None]
  - Stress fracture [None]
  - Bone disorder [None]
  - Low turnover osteopathy [None]
  - Back pain [None]
  - Nerve compression [None]
